FAERS Safety Report 9359207 (Version 1)
Quarter: 2013Q2

REPORT INFORMATION
  Report Type: Spontaneous
  Country: US (occurrence: US)
  Receive Date: 20130620
  Receipt Date: 20130620
  Transmission Date: 20140414
  Serious: No
  Sender: FDA-Public Use
  Company Number: US-US-EMD SERONO, INC.-7035853

PATIENT
  Sex: Female

DRUGS (2)
  1. REBIF [Suspect]
     Indication: MULTIPLE SCLEROSIS
     Route: 058
     Dates: start: 20100712
  2. BABY ASPIRIN [Concomitant]
     Indication: FACTOR V LEIDEN MUTATION

REACTIONS (3)
  - Migraine [Recovered/Resolved]
  - Influenza like illness [Unknown]
  - Injection site pain [Unknown]
